FAERS Safety Report 5305394-0 (Version None)
Quarter: 2007Q1

REPORT INFORMATION
  Report Type: 
  Country: None (occurrence: None)
  Receive Date: 20070201
  Receipt Date: 20061111
  Transmission Date: 20070707
  Serious: No
  Sender: FDA-Public Use
  Company Number: 2006PV025017

PATIENT
  Age: 80 Year
  Sex: Male
  Weight: 79.8331 kg

DRUGS (4)
  1. BYETTA [Suspect]
     Indication: DIABETES MELLITUS NON-INSULIN-DEPENDENT
     Dosage: SC
     Route: 058
     Dates: start: 20050701, end: 20051231
  2. BYETTA [Suspect]
     Indication: DIABETES MELLITUS NON-INSULIN-DEPENDENT
     Dosage: SC
     Route: 058
     Dates: start: 20060101, end: 20060925
  3. HUMALOG [Concomitant]
  4. LANTUS [Concomitant]

REACTIONS (1)
  - WEIGHT DECREASED [None]
